FAERS Safety Report 24209600 (Version 2)
Quarter: 2024Q3

REPORT INFORMATION
  Report Type: Report from Study
  Country: US (occurrence: US)
  Receive Date: 20240814
  Receipt Date: 20240830
  Transmission Date: 20241017
  Serious: Yes (Hospitalization)
  Sender: ALNYLAM PHARMACEUTICALS
  Company Number: US-ALNYLAM PHARMACEUTICALS, INC.-ALN-2024-004436

PATIENT

DRUGS (1)
  1. GIVLAARI [Suspect]
     Active Substance: GIVOSIRAN SODIUM
     Indication: Porphyria acute
     Dosage: 189 MILLIGRAM (189 MG/ML VIALS), ONCE EVERY 28 DAYS
     Route: 058
     Dates: start: 20201224, end: 20201224

REACTIONS (4)
  - Porphyria acute [Unknown]
  - Porphyria [Unknown]
  - Urinary tract infection [Unknown]
  - Stress [Unknown]

NARRATIVE: CASE EVENT DATE: 20240803
